FAERS Safety Report 21026477 (Version 1)
Quarter: 2022Q2

REPORT INFORMATION
  Report Type: Spontaneous
  Country: US (occurrence: US)
  Receive Date: 20220630
  Receipt Date: 20220630
  Transmission Date: 20220721
  Serious: Yes (Hospitalization)
  Sender: FDA-Public Use
  Company Number: US-MYLANLABS-2022M1049054

PATIENT
  Age: 52 Year
  Sex: Male

DRUGS (2)
  1. PAROXETINE [Suspect]
     Active Substance: PAROXETINE
     Indication: Post-traumatic stress disorder
     Dosage: UNK
     Route: 065
  2. PAROXETINE [Suspect]
     Active Substance: PAROXETINE
     Dosage: UNK, DOSE WAS INCREASED
     Route: 065

REACTIONS (3)
  - Dissociative disorder [Recovering/Resolving]
  - Depression [Recovering/Resolving]
  - Suicide attempt [Recovering/Resolving]
